FAERS Safety Report 4579793-9 (Version None)
Quarter: 2005Q1

REPORT INFORMATION
  Report Type: 
  Country: None (occurrence: None)
  Receive Date: 20050210
  Receipt Date: 20041223
  Transmission Date: 20050727
  Serious: Yes (Life-Threatening)
  Sender: FDA-Public Use
  Company Number: 2004118114

PATIENT
  Age: 70 Year
  Sex: Female

DRUGS (2)
  1. CELEBREX [Suspect]
     Indication: OSTEOARTHRITIS
     Dosage: 200 MG (1 IN 1 D), ORAL
     Route: 048
     Dates: start: 20041115, end: 20041117
  2. COTAREG (HYDROCHLOROTHIAZIDE, VALSARTAN) [Concomitant]

REACTIONS (3)
  - BRONCHIAL OBSTRUCTION [None]
  - DYSPNOEA [None]
  - URTICARIA [None]
